FAERS Safety Report 7341170-5 (Version None)
Quarter: 2011Q1

REPORT INFORMATION
  Report Type: 
  Country: None (occurrence: None)
  Receive Date: 20110309
  Receipt Date: 20110302
  Transmission Date: 20110831
  Serious: Yes (Other)
  Sender: FDA-Public Use
  Company Number: B0700668A

PATIENT
  Sex: Female

DRUGS (2)
  1. KESTINE [Suspect]
     Route: 065
     Dates: start: 20090520, end: 20091213
  2. AUGMENTIN [Suspect]
     Indication: TOOTH ABSCESS
     Route: 048
     Dates: start: 20101110, end: 20101121

REACTIONS (3)
  - TRANSAMINASES INCREASED [None]
  - ASTHENIA [None]
  - GAMMA-GLUTAMYLTRANSFERASE INCREASED [None]
